FAERS Safety Report 12604401 (Version 1)
Quarter: 2016Q3

REPORT INFORMATION
  Report Type: Report from Study
  Country: GT (occurrence: GT)
  Receive Date: 20160728
  Receipt Date: 20160728
  Transmission Date: 20161109
  Serious: Yes (Disabling)
  Sender: FDA-Public Use
  Company Number: GT-BAYER-2016-143641

PATIENT
  Age: 62 Year
  Sex: Female

DRUGS (1)
  1. BETAFERON [Suspect]
     Active Substance: INTERFERON BETA-1B
     Indication: MULTIPLE SCLEROSIS
     Dosage: 1 DF, QOD
     Route: 058
     Dates: start: 20111211

REACTIONS (6)
  - Haematoma [None]
  - Renal disorder [None]
  - Muscle spasms [None]
  - Peripheral swelling [None]
  - Headache [None]
  - Peripheral swelling [None]

NARRATIVE: CASE EVENT DATE: 2015
